FAERS Safety Report 7631036-5 (Version None)
Quarter: 2011Q3

REPORT INFORMATION
  Report Type: 
  Country: None (occurrence: None)
  Receive Date: 20110725
  Receipt Date: 20110719
  Transmission Date: 20111222
  Serious: No
  Sender: FDA-Public Use
  Company Number: US-BIOGENIDEC-2011BI026885

PATIENT
  Sex: Female

DRUGS (2)
  1. AVONEX [Suspect]
     Route: 030
     Dates: start: 20030101
  2. AVONEX [Suspect]
     Indication: MULTIPLE SCLEROSIS
     Route: 030
     Dates: start: 20000807, end: 20031210

REACTIONS (7)
  - CHILLS [None]
  - PAIN [None]
  - ARTHRALGIA [None]
  - HORMONE LEVEL ABNORMAL [None]
  - MENTAL IMPAIRMENT [None]
  - PYREXIA [None]
  - ANXIETY [None]
